FAERS Safety Report 4287954-1 (Version None)
Quarter: 2004Q1

REPORT INFORMATION
  Report Type: 
  Country: None (occurrence: None)
  Receive Date: 20040205
  Receipt Date: 20040119
  Transmission Date: 20041129
  Serious: Yes (Hospitalization, Other)
  Sender: FDA-Public Use
  Company Number: USA040156920

PATIENT
  Age: 71 Year
  Sex: Female

DRUGS (1)
  1. HUMULIN N [Suspect]
     Indication: DIABETES MELLITUS
     Dosage: 88 U/DAY
     Dates: start: 20000101

REACTIONS (15)
  - ABNORMAL DREAMS [None]
  - ANAEMIA [None]
  - BACK PAIN [None]
  - BLOOD GLUCOSE INCREASED [None]
  - CARDIAC DISORDER [None]
  - CEREBROVASCULAR ACCIDENT [None]
  - COLONIC POLYP [None]
  - DEVICE FAILURE [None]
  - DIALYSIS [None]
  - PAIN [None]
  - POLYP [None]
  - RENAL FAILURE [None]
  - SMALL INTESTINAL HAEMORRHAGE [None]
  - SPEECH DISORDER [None]
  - THROMBOSIS [None]
